FAERS Safety Report 4345843-8 (Version None)
Quarter: 2004Q2

REPORT INFORMATION
  Report Type: 
  Country: None (occurrence: None)
  Receive Date: 20040420
  Receipt Date: 20040406
  Transmission Date: 20050107
  Serious: Yes (Hospitalization)
  Sender: FDA-Public Use
  Company Number: 2004SE01931

PATIENT
  Age: 79 Year
  Sex: Female

DRUGS (4)
  1. TENORETIC [Suspect]
     Indication: HYPERTENSION
     Dosage: 1 DF DAILY PO
     Route: 048
     Dates: start: 20040210, end: 20040318
  2. ZESTRIL [Suspect]
     Indication: HYPERTENSION
     Dosage: 20 MG DAILY PO
     Route: 048
     Dates: start: 20040210, end: 20040318
  3. SIVASTATIN [Suspect]
     Indication: HYPERCHOLESTEROLAEMIA
     Dosage: 40 MG DAILY PO
     Route: 048
     Dates: start: 20040213, end: 20040313
  4. NORVASC [Concomitant]

REACTIONS (1)
  - RHABDOMYOLYSIS [None]
